FAERS Safety Report 6919452-8 (Version None)
Quarter: 2010Q3

REPORT INFORMATION
  Report Type: 
  Country: None (occurrence: None)
  Receive Date: 20100811
  Receipt Date: 20100805
  Transmission Date: 20110219
  Serious: Yes (Hospitalization, Disabling)
  Sender: FDA-Public Use
  Company Number: B0668603A

PATIENT
  Sex: Male
  Weight: 57 kg

DRUGS (6)
  1. AVANDIA [Suspect]
     Dosage: 8MG PER DAY
     Route: 048
     Dates: start: 20060101, end: 20100501
  2. JANUVIA [Concomitant]
     Dosage: 100MG PER DAY
     Route: 065
     Dates: start: 20100601
  3. GLUCOPHAGE [Concomitant]
     Dosage: 850MG THREE TIMES PER DAY
     Route: 065
     Dates: start: 20050101
  4. HEMIDAONIL [Concomitant]
     Dosage: .5UNIT THREE TIMES PER DAY
     Route: 065
     Dates: start: 20050101
  5. GLUCOR [Concomitant]
     Dosage: 50MG SIX TIMES PER DAY
     Route: 065
     Dates: start: 20050101
  6. TAHOR [Concomitant]
     Indication: PRODUCT USED FOR UNKNOWN INDICATION
     Dosage: 10MG TWICE PER DAY
     Route: 065

REACTIONS (2)
  - OSTEOPOROSIS [None]
  - SPINAL COMPRESSION FRACTURE [None]
